FAERS Safety Report 9152506 (Version 1)
Quarter: 2013Q1

REPORT INFORMATION
  Report Type: Spontaneous
  Country: US (occurrence: US)
  Receive Date: 20130308
  Receipt Date: 20130308
  Transmission Date: 20140127
  Serious: No
  Sender: FDA-Public Use
  Company Number: US-MUTUAL PHARMACEUTICAL COMPANY, INC.-CLCY20120115

PATIENT
  Age: 29 None
  Sex: Male
  Weight: 175.24 kg

DRUGS (7)
  1. COLCRYS [Suspect]
     Indication: ARTHRITIS
     Route: 048
     Dates: start: 201208
  2. COLCRYS [Suspect]
     Route: 048
     Dates: start: 20120402, end: 201208
  3. ALLOPURINOL [Suspect]
     Indication: ARTHRITIS
     Route: 048
     Dates: start: 201208
  4. ALLOPURINOL [Suspect]
     Route: 048
     Dates: start: 201208, end: 201208
  5. ALLOPURINOL [Suspect]
     Route: 048
     Dates: start: 20120402, end: 2012
  6. ALLOPURINOL [Suspect]
     Route: 048
     Dates: end: 20120401
  7. PLAQUENIL [Concomitant]
     Indication: UNDIFFERENTIATED CONNECTIVE TISSUE DISEASE
     Route: 048

REACTIONS (4)
  - Off label use [None]
  - Ejaculation delayed [Recovered/Resolved]
  - Ejaculation failure [Recovered/Resolved]
  - Erectile dysfunction [Recovered/Resolved]
